FAERS Safety Report 4565939-5 (Version None)
Quarter: 2005Q1

REPORT INFORMATION
  Report Type: 
  Country: None (occurrence: None)
  Receive Date: 20050131
  Receipt Date: 20040816
  Transmission Date: 20050727
  Serious: Yes (Hospitalization)
  Sender: FDA-Public Use
  Company Number: DE-MERCK-0408DEU00118

PATIENT
  Age: 64 Year
  Sex: Female
  Weight: 45 kg

DRUGS (8)
  1. FOSAMAX [Suspect]
     Indication: OSTEOPOROSIS
     Route: 048
     Dates: start: 20040201, end: 20040305
  2. FOSAMAX [Suspect]
     Route: 048
     Dates: start: 20040101, end: 20050123
  3. VITAMIN D (UNSPECIFIED) [Concomitant]
     Route: 048
  4. VITAMIN E [Concomitant]
     Route: 048
  5. VITAMIN A [Concomitant]
     Route: 048
  6. MAGNESIUM (UNSPECIFIED) [Concomitant]
     Route: 048
  7. ASCORBIC ACID [Concomitant]
     Route: 048
  8. CALCIUM GLUCONATE AND CALCIUM PHOSPHATE TRIBASIC AND CHOLECALCIFEROL [Concomitant]
     Route: 048

REACTIONS (7)
  - ABDOMINAL PAIN UPPER [None]
  - BONE PAIN [None]
  - DIARRHOEA [None]
  - HEADACHE [None]
  - PANCREATIC DISORDER [None]
  - RENAL DISORDER [None]
  - WEIGHT DECREASED [None]
